FAERS Safety Report 7934267-X (Version None)
Quarter: 2011Q4

REPORT INFORMATION
  Report Type: 
  Country: None (occurrence: None)
  Receive Date: 20111118
  Receipt Date: 20111107
  Transmission Date: 20120403
  Serious: Yes (Hospitalization)
  Sender: FDA-Public Use
  Company Number: 2011MA016237

PATIENT
  Age: 36 Year
  Sex: Male

DRUGS (1)
  1. PANTOPRAZOLE [Suspect]
     Dosage: 20  MG;BID;PO
     Route: 048
     Dates: start: 20101215, end: 20110111

REACTIONS (1)
  - TUBULOINTERSTITIAL NEPHRITIS [None]
